FAERS Safety Report 15321524 (Version 4)
Quarter: 2019Q2

REPORT INFORMATION
  Report Type: Report from Study
  Country: PL (occurrence: PL)
  Receive Date: 20180827
  Receipt Date: 20190621
  Transmission Date: 20190711
  Serious: Yes (Hospitalization)
  Sender: FDA-Public Use
  Company Number: PL-TOLMAR, INC.-2018PL008561

PATIENT

DRUGS (7)
  1. VANATEX [Concomitant]
     Indication: HYPERTENSION
     Dosage: 160 MG, ONCE DAILY
     Route: 048
     Dates: start: 201702
  2. ELIGARD [Suspect]
     Active Substance: LEUPROLIDE ACETATE
     Indication: PROSTATE CANCER
     Dosage: 22.5 MG, EVERY 3MONTHS
     Route: 058
     Dates: start: 20171012, end: 20180329
  3. HUMALOG [Concomitant]
     Active Substance: INSULIN LISPRO
     Indication: DIABETES MELLITUS
     Dosage: 55 IU, TID
     Route: 030
     Dates: start: 201609
  4. ATROX [Concomitant]
     Active Substance: ATORVASTATIN CALCIUM
     Indication: HYPERLIPIDAEMIA
     Dosage: 10 MG, ONCE DAILY
     Route: 048
     Dates: start: 20150502
  5. POLOCARD [Concomitant]
     Active Substance: ASPIRIN
     Indication: PROPHYLAXIS
     Dosage: 150 MG, ONCE DAILY
     Route: 048
     Dates: start: 201509
  6. ENZALUTAMIDE [Suspect]
     Active Substance: ENZALUTAMIDE
     Indication: PROSTATE CANCER
     Dosage: UNK, ONCE DAILY
     Route: 048
     Dates: start: 20171012, end: 20180625
  7. AVAMINA [Concomitant]
     Indication: DIABETES MELLITUS
     Dosage: 500 MG, TID
     Route: 048
     Dates: start: 201609

REACTIONS (1)
  - Urinary tract infection [Recovered/Resolved]

NARRATIVE: CASE EVENT DATE: 20180807
